FAERS Safety Report 6643450-5 (Version None)
Quarter: 2010Q1

REPORT INFORMATION
  Report Type: 
  Country: None (occurrence: None)
  Receive Date: 20100319
  Receipt Date: 20100308
  Transmission Date: 20100710
  Serious: Yes (Death)
  Sender: FDA-Public Use
  Company Number: DE-WATSON-2010-02908

PATIENT
  Age: 46 Year
  Sex: Male
  Weight: 73 kg

DRUGS (4)
  1. NICOTINE POLACRILEX (WATSON LABORATORIES) [Suspect]
     Indication: COMPLETED SUICIDE
     Dosage: 175 MG, SINGLE
     Route: 062
  2. TRAMADOL HCL [Suspect]
     Indication: COMPLETED SUICIDE
     Dosage: UNK
     Route: 048
  3. DIPHENHYDRAMINE HCL [Suspect]
     Indication: COMPLETED SUICIDE
     Dosage: UNK
  4. PARACETAMOL [Suspect]
     Indication: COMPLETED SUICIDE
     Dosage: UNK

REACTIONS (7)
  - CARDIOPULMONARY FAILURE [None]
  - CIRCULATORY COLLAPSE [None]
  - DEPRESSED LEVEL OF CONSCIOUSNESS [None]
  - DRUG INTERACTION [None]
  - HYPOTENSION [None]
  - HYPOXIA [None]
  - POISONING [None]
